FAERS Safety Report 8672456 (Version 2)
Quarter: 2013Q1

REPORT INFORMATION
  Report Type: Spontaneous
  Country: CA (occurrence: CA)
  Receive Date: 20120719
  Receipt Date: 20130225
  Transmission Date: 20140127
  Serious: Yes (Hospitalization)
  Sender: FDA-Public Use
  Company Number: CA-US-EMD SERONO, INC.-7147830

PATIENT
  Age: 34 Year
  Sex: Female

DRUGS (1)
  1. REBIF [Suspect]
     Indication: MULTIPLE SCLEROSIS
     Route: 058
     Dates: start: 20120710

REACTIONS (6)
  - Syncope [Recovered/Resolved]
  - Pollakiuria [Unknown]
  - Muscle tightness [Unknown]
  - Skin burning sensation [Unknown]
  - Back pain [Unknown]
  - Musculoskeletal chest pain [Unknown]
